FAERS Safety Report 12731216 (Version 1)
Quarter: 2016Q3

REPORT INFORMATION
  Report Type: Spontaneous
  Country: DE (occurrence: DE)
  Receive Date: 20160912
  Receipt Date: 20160912
  Transmission Date: 20161109
  Serious: Yes (Death, Hospitalization, Other)
  Sender: FDA-Public Use
  Company Number: DE-BRISTOL-MYERS SQUIBB COMPANY-BMS-2016-053090

PATIENT
  Age: 74 Year
  Sex: Male
  Weight: 75 kg

DRUGS (3)
  1. OPDIVO [Suspect]
     Active Substance: NIVOLUMAB
     Dosage: UNK MG, UNK
     Route: 042
     Dates: start: 20160525
  2. OPDIVO [Suspect]
     Active Substance: NIVOLUMAB
     Indication: NON-SMALL CELL LUNG CANCER
     Dosage: 230 MG, UNK
     Route: 042
     Dates: start: 20160413, end: 20160608
  3. OPDIVO [Suspect]
     Active Substance: NIVOLUMAB
     Dosage: UNK MG, UNK
     Route: 042
     Dates: start: 20160511

REACTIONS (4)
  - Pneumonitis [Fatal]
  - Autoimmune colitis [Recovered/Resolved]
  - Conjunctivitis [Recovered/Resolved]
  - Lymphangiosis carcinomatosa [Fatal]

NARRATIVE: CASE EVENT DATE: 20160523
